FAERS Safety Report 15168322 (Version 2)
Quarter: 2018Q4

REPORT INFORMATION
  Report Type: Spontaneous
  Country: DE (occurrence: DE)
  Receive Date: 20180719
  Receipt Date: 20181005
  Transmission Date: 20190204
  Serious: Yes (Life-Threatening, Other)
  Sender: FDA-Public Use
  Company Number: DE-009507513-1005ITA00034

PATIENT
  Age: 40 Year
  Sex: Male

DRUGS (5)
  1. LOSARTAN POTASSIUM. [Suspect]
     Active Substance: LOSARTAN POTASSIUM
     Dosage: 50 MG, QD
     Route: 048
     Dates: start: 200801, end: 200801
  2. LOSARTAN POTASSIUM. [Suspect]
     Active Substance: LOSARTAN POTASSIUM
     Indication: PORTAL HYPERTENSION
     Dosage: 50 MG, QD
     Route: 048
     Dates: start: 200801, end: 200801
  3. LOSARTAN POTASSIUM. [Suspect]
     Active Substance: LOSARTAN POTASSIUM
     Indication: PROTEINURIA
     Dosage: 50 MG, QD
     Route: 048
     Dates: start: 200712, end: 200801
  4. RAMIPRIL. [Interacting]
     Active Substance: RAMIPRIL
     Indication: PROTEINURIA
     Dosage: 2.5 MG, QD
     Route: 048
     Dates: start: 200801, end: 200801
  5. RAMIPRIL. [Interacting]
     Active Substance: RAMIPRIL
     Indication: GLOMERULONEPHRITIS

REACTIONS (4)
  - Nervous system disorder [Recovered/Resolved]
  - Hepatic encephalopathy [Recovered/Resolved]
  - Drug interaction [Recovered/Resolved]
  - Product use in unapproved indication [Unknown]

NARRATIVE: CASE EVENT DATE: 200801
